FAERS Safety Report 23262200 (Version 1)
Quarter: 2023Q4

REPORT INFORMATION
  Report Type: Spontaneous
  Country: US (occurrence: None)
  Receive Date: 20231204
  Receipt Date: 20231204
  Transmission Date: 20240110
  Serious: Yes (Hospitalization)
  Sender: FDA-Public Use
  Company Number: None

PATIENT
  Sex: Female

DRUGS (17)
  1. COPAXONE [Suspect]
     Active Substance: GLATIRAMER ACETATE
  2. CETIRIZINE TAB 10MG [Concomitant]
  3. ELIQUIS TAB 2.5MG [Concomitant]
  4. FUROSEMIDE TAB 20MG [Concomitant]
  5. GABAPENTIN POW [Concomitant]
  6. LOSARTAN POT TAB 50MG [Concomitant]
  7. METHYLPRED TAB 4MG [Concomitant]
  8. NAPROXEN TAB 500MG [Concomitant]
  9. NIFEDIPINE CAP 10MG [Concomitant]
  10. OMEPRAZOLE AP 20MG [Concomitant]
  11. OXYCOD/APAP TAB 5-325MG [Concomitant]
  12. ROPINIROLE TAB 1MG [Concomitant]
  13. ROPINIROLE TAB 2MG [Concomitant]
  14. TOLTERODINE CAP 4MG ER [Concomitant]
  15. VENLAFAXINE TAB 25MG [Concomitant]
  16. VITAMIN D-3 CAP 2000UNIT [Concomitant]
  17. AMOX/K CLAV TAB 875-125 [Concomitant]

REACTIONS (4)
  - Multiple sclerosis [None]
  - Fall [None]
  - Movement disorder [None]
  - Localised infection [None]
